FAERS Safety Report 10146583 (Version 2)
Quarter: 2014Q2

REPORT INFORMATION
  Report Type: Spontaneous
  Country: BE (occurrence: BE)
  Receive Date: 20140501
  Receipt Date: 20140501
  Transmission Date: 20141212
  Serious: Yes (Death)
  Sender: FDA-Public Use
  Company Number: BE-BAXTER-2014BAX020381

PATIENT
  Age: 76 Year
  Sex: Male

DRUGS (5)
  1. EXTRANEAL 7,5%, SOLUTION POUR DIALYSE P?RITON?ALE [Suspect]
     Indication: PERITONEAL DIALYSIS
     Route: 033
  2. EXTRANEAL 7,5%, SOLUTION POUR DIALYSE P?RITON?ALE [Suspect]
     Indication: CARDIAC FAILURE
     Route: 033
     Dates: end: 20140415
  3. EXTRANEAL 7,5%, SOLUTION POUR DIALYSE P?RITON?ALE [Suspect]
     Indication: OFF LABEL USE
  4. PHYSIONEAL 40 GLUCOSE 1,36%, SOLUTION POUR DIALYSE P?RITON?ALE [Suspect]
     Indication: PERITONEAL DIALYSIS
     Route: 033
     Dates: end: 20140415
  5. PHYSIONEAL 40 GLUCOSE 1,36%, SOLUTION POUR DIALYSE P?RITON?ALE [Suspect]
     Indication: CARDIAC FAILURE

REACTIONS (1)
  - Cardiac arrest [Fatal]
